FAERS Safety Report 5875663-4 (Version None)
Quarter: 2008Q3

REPORT INFORMATION
  Report Type: 
  Country: None (occurrence: None)
  Receive Date: 20080904
  Receipt Date: 20080820
  Transmission Date: 20090109
  Serious: Yes (Death, Hospitalization)
  Sender: FDA-Public Use
  Company Number: 2008AL005202

PATIENT
  Sex: Female

DRUGS (2)
  1. DIGOXIN [Suspect]
     Dosage: 0.125MG, PO
     Route: 048
     Dates: start: 20071101, end: 20080715
  2. WARFARIN SODIUM [Concomitant]

REACTIONS (6)
  - DIZZINESS [None]
  - EUPHORIC MOOD [None]
  - EYE DISORDER [None]
  - HEADACHE [None]
  - MALAISE [None]
  - NAUSEA [None]
